FAERS Safety Report 7294584-6 (Version None)
Quarter: 2011Q1

REPORT INFORMATION
  Report Type: 
  Country: None (occurrence: None)
  Receive Date: 20110216
  Receipt Date: 20110211
  Transmission Date: 20110831
  Serious: No
  Sender: FDA-Public Use
  Company Number: US-BIOGENIDEC-2011BI005451

PATIENT
  Age: 34 Year
  Sex: Female

DRUGS (1)
  1. TYSABRI [Suspect]
     Indication: MULTIPLE SCLEROSIS
     Route: 042
     Dates: start: 20110131

REACTIONS (6)
  - OEDEMA PERIPHERAL [None]
  - ARTHRALGIA [None]
  - CHILLS [None]
  - HEADACHE [None]
  - NERVOUSNESS [None]
  - PAIN IN EXTREMITY [None]
